FAERS Safety Report 5900177-2 (Version None)
Quarter: 2008Q3

REPORT INFORMATION
  Report Type: 
  Country: None (occurrence: None)
  Receive Date: 20080924
  Receipt Date: 20080911
  Transmission Date: 20090109
  Serious: Yes (Hospitalization)
  Sender: FDA-Public Use
  Company Number: 2008AL007657

PATIENT
  Age: 24 Year
  Sex: Female

DRUGS (3)
  1. DIAZEPAM               (DIAZEPAM TABLETS USP, [Suspect]
     Dosage: 130 MG;X1
  2. CLOZARIL [Concomitant]
  3. OLANZAPINE [Concomitant]

REACTIONS (2)
  - MULTIPLE DRUG OVERDOSE [None]
  - SOMNOLENCE [None]
